FAERS Safety Report 16940986 (Version 1)
Quarter: 2019Q4

REPORT INFORMATION
  Report Type: Not Available
  Country: US (occurrence: US)
  Receive Date: 20191021
  Receipt Date: 20191021
  Transmission Date: 20200122
  Serious: No
  Sender: FDA-Public Use
  Company Number: US-NEUROCRINE BIOSCIENCES INC.-2019NBI03043

PATIENT
  Age: 62 Year
  Sex: Female

DRUGS (6)
  1. LEVOTHYROXINE. [Concomitant]
     Active Substance: LEVOTHYROXINE
  2. GINKGO BILOBA [Concomitant]
     Active Substance: GINKGO
  3. TURMERIC [Concomitant]
     Active Substance: HERBALS\TURMERIC
  4. INGREZZA [Suspect]
     Active Substance: VALBENAZINE
     Indication: TARDIVE DYSKINESIA
     Route: 048
     Dates: start: 20190909, end: 2019
  5. VITAMIN D3 [Concomitant]
     Active Substance: CHOLECALCIFEROL
  6. VITAMIN B6 [Concomitant]
     Active Substance: PYRIDOXINE HYDROCHLORIDE

REACTIONS (1)
  - Mania [Unknown]

NARRATIVE: CASE EVENT DATE: 20190918
